FAERS Safety Report 11845258 (Version 2)
Quarter: 2017Q4

REPORT INFORMATION
  Report Type: Spontaneous
  Country: US (occurrence: US)
  Receive Date: 20151217
  Receipt Date: 20171206
  Transmission Date: 20180320
  Serious: No
  Sender: FDA-Public Use
  Company Number: US-PFIZER INC-2015405164

PATIENT
  Age: 55 Year
  Sex: Male

DRUGS (1)
  1. XELJANZ [Suspect]
     Active Substance: TOFACITINIB CITRATE
     Dosage: 5 MG, 2X/DAY
     Route: 048
     Dates: start: 20150819

REACTIONS (5)
  - Condition aggravated [Unknown]
  - Arthralgia [Unknown]
  - Drug dose omission [Unknown]
  - Testicular disorder [Unknown]
  - Rash [Unknown]

NARRATIVE: CASE EVENT DATE: 201709
